FAERS Safety Report 9678878 (Version 2)
Quarter: 2013Q4

REPORT INFORMATION
  Report Type: Spontaneous
  Country: US (occurrence: US)
  Receive Date: 20131108
  Receipt Date: 20131108
  Transmission Date: 20140711
  Serious: Yes (Hospitalization)
  Sender: FDA-Public Use
  Company Number: US-B.I. PHARMACEUTICALS,INC./RIDGEFIELD-2013-BI-13954BP

PATIENT
  Sex: Female
  Weight: 65.32 kg

DRUGS (10)
  1. PRADAXA [Suspect]
     Indication: ANTICOAGULANT THERAPY
     Route: 048
     Dates: start: 20110711, end: 20121112
  2. PRADAXA [Suspect]
     Indication: ATRIAL FIBRILLATION
  3. PERCOCET [Concomitant]
     Indication: PAIN
     Route: 048
  4. CARDIZEM [Concomitant]
     Dosage: 240 MG
     Route: 048
  5. LASIX [Concomitant]
     Dosage: 40 MG
     Route: 048
  6. LYRICA [Concomitant]
     Dosage: 200 MG
     Route: 048
  7. AMBIEN [Concomitant]
     Indication: INSOMNIA
     Dosage: 10 MG
     Route: 048
  8. DILAUDID [Concomitant]
     Indication: PAIN
     Dosage: 24 MG
     Route: 048
  9. SYNTHROID [Concomitant]
     Dosage: 50 MCG
     Route: 048
  10. FERROUS SULFATE [Concomitant]
     Dosage: 325 MG
     Route: 048

REACTIONS (3)
  - Gastrointestinal haemorrhage [Unknown]
  - Anaemia [Unknown]
  - Contusion [Unknown]
